FAERS Safety Report 22347250 (Version 1)
Quarter: 2023Q2

REPORT INFORMATION
  Report Type: Spontaneous
  Country: US (occurrence: US)
  Receive Date: 20230521
  Receipt Date: 20230521
  Transmission Date: 20230721
  Serious: No
  Sender: FDA-Public Use
  Company Number: US-BRISTOL-MYERS SQUIBB COMPANY-2023-070796

PATIENT
  Age: 86 Year
  Sex: Male
  Weight: 78.9 kg

DRUGS (1)
  1. REVLIMID [Suspect]
     Active Substance: LENALIDOMIDE
     Indication: Plasma cell myeloma
     Dosage: DOSE : 10 MG;     FREQ : 14 DAYS ON 7 DAYS OFF
     Route: 048
     Dates: start: 20230313, end: 202305

REACTIONS (1)
  - Off label use [Unknown]
